FAERS Safety Report 12495671 (Version 1)
Quarter: 2016Q2

REPORT INFORMATION
  Report Type: Other
  Country: DE (occurrence: DE)
  Receive Date: 20160624
  Receipt Date: 20160624
  Transmission Date: 20160815
  Serious: Yes (Death)
  Sender: FDA-Public Use
  Company Number: DE-CIPLA LTD.-2016DE08070

PATIENT

DRUGS (3)
  1. EPIRUBICIN [Suspect]
     Active Substance: EPIRUBICIN
     Indication: ADENOCARCINOMA
     Dosage: UNK
     Route: 065
  2. CAPECITABINE. [Suspect]
     Active Substance: CAPECITABINE
     Indication: ADENOCARCINOMA
     Dosage: UNK
     Route: 065
  3. CISPLATIN. [Suspect]
     Active Substance: CISPLATIN
     Indication: ADENOCARCINOMA
     Dosage: UNK
     Route: 065

REACTIONS (2)
  - Death [Fatal]
  - Toxicity to various agents [Fatal]
